FAERS Safety Report 19416993 (Version 1)
Quarter: 2021Q2

REPORT INFORMATION
  Report Type: Spontaneous
  Country: US (occurrence: US)
  Receive Date: 20210614
  Receipt Date: 20210614
  Transmission Date: 20210717
  Serious: No
  Sender: FDA-Public Use
  Company Number: None

PATIENT
  Age: 61 Year
  Sex: Male

DRUGS (1)
  1. ETODOLAC (ETODOLAC 300MG CAP) [Suspect]
     Active Substance: ETODOLAC
     Indication: PAIN
     Route: 048
     Dates: start: 20210324, end: 20210525

REACTIONS (2)
  - Sepsis [None]
  - Acute kidney injury [None]

NARRATIVE: CASE EVENT DATE: 20210519
